FAERS Safety Report 4347061-6 (Version None)
Quarter: 2004Q2

REPORT INFORMATION
  Report Type: 
  Country: None (occurrence: None)
  Receive Date: 20040426
  Receipt Date: 20040311
  Transmission Date: 20050107
  Serious: Yes (Death)
  Sender: FDA-Public Use
  Company Number: US-GLAXOSMITHKLINE-A0502375A

PATIENT
  Age: 70 Year
  Sex: Female

DRUGS (9)
  1. ADVAIR DISKUS 100/50 [Suspect]
     Indication: COUGH
     Dosage: 1PUFF SINGLE DOSE
     Route: 055
     Dates: start: 20040227, end: 20040227
  2. CELEBREX [Concomitant]
  3. BLOOD PRESSURE MEDICATION [Concomitant]
  4. ATENOLOL [Concomitant]
  5. HYDROCHLOROTHIAZIDE [Concomitant]
  6. COZAAR [Concomitant]
  7. CELEBREX [Concomitant]
  8. UNSPECIFIED MEDICATION [Concomitant]
  9. LIPITOR [Concomitant]

REACTIONS (1)
  - DEATH [None]
